FAERS Safety Report 9582014 (Version 4)
Quarter: 2013Q4

REPORT INFORMATION
  Report Type: Report from Study
  Country: JP (occurrence: JP)
  Receive Date: 20131002
  Receipt Date: 20131206
  Transmission Date: 20140711
  Serious: Yes (Death)
  Sender: FDA-Public Use
  Company Number: JP-PFIZER INC-2013278576

PATIENT
  Age: 54 Year
  Sex: Female
  Weight: 40 kg

DRUGS (6)
  1. CRIZOTINIB [Suspect]
     Indication: NON-SMALL CELL LUNG CANCER
     Dosage: 200 MG, 2X/DAY
     Route: 048
     Dates: start: 20130827, end: 20130910
  2. CRIZOTINIB [Suspect]
     Dosage: 250 MG, 2X/DAY
     Dates: start: 20130911, end: 20130925
  3. NAUZELIN OD [Concomitant]
  4. PARIET [Concomitant]
     Dosage: 10 MG, 1X/DAY
     Route: 048
  5. JANUVIA [Concomitant]
     Dosage: 50 MG, 1X/DAY
     Route: 048
  6. PREDONINE [Concomitant]
     Dosage: 7.5 MG, 1X/DAY
     Route: 048

REACTIONS (1)
  - Hepatitis fulminant [Fatal]
